FAERS Safety Report 24286944 (Version 1)
Quarter: 2024Q3

REPORT INFORMATION
  Report Type: Report from Study
  Country: GB (occurrence: GB)
  Receive Date: 20240905
  Receipt Date: 20240905
  Transmission Date: 20241017
  Serious: Yes (Death, Other)
  Sender: SANDOZ
  Company Number: GB-SANDOZ-SDZ2024GB077841

PATIENT
  Sex: Female

DRUGS (1)
  1. HYRIMOZ [Suspect]
     Active Substance: ADALIMUMAB-ADAZ
     Indication: Psoriasis
     Dosage: 40 MG, Q2W HYRIMOZ 40MG/0.4ML SOLUTION FOR INJECTION PRE-FILLED PENS
     Route: 058
     Dates: start: 20230322

REACTIONS (1)
  - Death [Fatal]
